FAERS Safety Report 5818339-1 (Version None)
Quarter: 2008Q3

REPORT INFORMATION
  Report Type: 
  Country: None (occurrence: None)
  Receive Date: 20080722
  Receipt Date: 20080710
  Transmission Date: 20090109
  Serious: Yes (Other)
  Sender: FDA-Public Use
  Company Number: US-PFIZER INC-2008057480

PATIENT
  Sex: Female
  Weight: 108.9 kg

DRUGS (1)
  1. ZOLOFT [Suspect]
     Indication: DEPRESSION

REACTIONS (2)
  - DEPENDENCE [None]
  - DRUG ADMINISTRATION ERROR [None]
